FAERS Safety Report 8907627 (Version 1)
Quarter: 2012Q4

REPORT INFORMATION
  Report Type: 
  Country: DK (occurrence: DK)
  Receive Date: 20121114
  Receipt Date: 20121114
  Transmission Date: 20130627
  Serious: Yes (Other)
  Sender: FDA-Public Use
  Company Number: DK-B.I. PHARMACEUTICALS,INC./RIDGEFIELD-2012-SW-00837DB

PATIENT
  Age: 52 Year
  Sex: Female
  Weight: 60 kg

DRUGS (10)
  1. SPIRIVA [Suspect]
     Indication: CHRONIC OBSTRUCTIVE PULMONARY DISEASE
     Dosage: 18 mcg
     Route: 055
     Dates: start: 20120906
  2. ALENDRONAT ARROW [Concomitant]
     Indication: OSTEOPOROSIS
  3. SEREVENT [Concomitant]
  4. FLIXOTIDE [Concomitant]
  5. BERODUAL [Concomitant]
  6. BRICANYL [Concomitant]
  7. SIMVASTATIN [Concomitant]
  8. RAMIPRIL [Concomitant]
  9. PARACETAMOL [Concomitant]
  10. HJERTEMAGNYL [Concomitant]

REACTIONS (2)
  - Lung infection [Not Recovered/Not Resolved]
  - Inflammation [Not Recovered/Not Resolved]
